FAERS Safety Report 4827802-1 (Version None)
Quarter: 2005Q4

REPORT INFORMATION
  Report Type: 
  Country: None (occurrence: None)
  Receive Date: 20051110
  Receipt Date: 20051027
  Transmission Date: 20060501
  Serious: Yes (Other)
  Sender: FDA-Public Use
  Company Number: SUS1-2005-00799

PATIENT
  Age: 20 Year
  Sex: Female

DRUGS (2)
  1. ADDERALL 10 [Suspect]
     Indication: ATTENTION DEFICIT/HYPERACTIVITY DISORDER
     Dosage: 10 MG IN THE AFTERNOON, ORAL
     Route: 048
     Dates: start: 20050101, end: 20051025
  2. ADDERALL XR 25 [Suspect]
     Indication: ATTENTION DEFICIT/HYPERACTIVITY DISORDER
     Dosage: 20 MG IN AM, ORAL
     Route: 048
     Dates: start: 20050101, end: 20051025

REACTIONS (1)
  - PERICARDITIS [None]
